FAERS Safety Report 25441180 (Version 1)
Quarter: 2025Q2

REPORT INFORMATION
  Report Type: Spontaneous
  Country: CN (occurrence: CN)
  Receive Date: 20250616
  Receipt Date: 20250616
  Transmission Date: 20250717
  Serious: Yes (Hospitalization)
  Sender: ELI LILLY AND COMPANY
  Company Number: CN-Merck Healthcare KGaA-2025029119

PATIENT
  Age: 67 Year
  Sex: Male
  Weight: 53 kg

DRUGS (4)
  1. ERBITUX [Suspect]
     Active Substance: CETUXIMAB
     Indication: Oral neoplasm
     Route: 041
     Dates: start: 20250423, end: 20250423
  2. CISPLATIN [Suspect]
     Active Substance: CISPLATIN
     Indication: Oral neoplasm
     Dosage: 60 MG, DAILY
     Route: 041
     Dates: start: 20250422, end: 20250422
  3. SODIUM CHLORIDE [Concomitant]
     Active Substance: SODIUM CHLORIDE
     Indication: Product used for unknown indication
     Dosage: 500 ML, DAILY
     Route: 041
     Dates: start: 20250422, end: 20250422
  4. SODIUM CHLORIDE [Concomitant]
     Active Substance: SODIUM CHLORIDE
     Dosage: 250 ML, DAILY
     Route: 041
     Dates: start: 20250423, end: 20250423

REACTIONS (1)
  - Myelosuppression [Recovering/Resolving]

NARRATIVE: CASE EVENT DATE: 20250428
